FAERS Safety Report 8459033-0 (Version None)
Quarter: 2012Q2

REPORT INFORMATION
  Report Type: 
  Country: None (occurrence: None)
  Receive Date: 20120622
  Receipt Date: 20120618
  Transmission Date: 20120825
  Serious: Yes (Other)
  Sender: FDA-Public Use
  Company Number: US-GILEAD-2012-0056739

PATIENT
  Sex: Male

DRUGS (5)
  1. REYATAZ [Concomitant]
     Indication: HIV INFECTION
     Route: 064
  2. EMTRICITABINE/TENOFOVIR DISOPROXIL FUMARATE [Suspect]
     Indication: HIV INFECTION
     Dosage: UNK
     Route: 064
     Dates: end: 20111110
  3. RETROVIR [Concomitant]
     Indication: HIV INFECTION
     Dosage: UNK
     Route: 064
     Dates: start: 20120525, end: 20120525
  4. NORVIR [Concomitant]
     Indication: HIV INFECTION
     Route: 064
  5. COMBIVIR [Concomitant]
     Indication: HIV INFECTION
     Dosage: UNK
     Route: 064
     Dates: start: 20111110, end: 20120607

REACTIONS (1)
  - HYDRONEPHROSIS [None]
